FAERS Safety Report 14604215 (Version 6)
Quarter: 2018Q3

REPORT INFORMATION
  Report Type: Spontaneous
  Country: DE (occurrence: DE)
  Receive Date: 20180306
  Receipt Date: 20180921
  Transmission Date: 20181010
  Serious: Yes (Hospitalization)
  Sender: FDA-Public Use
  Company Number: DE-TEVA-2018-DE-863143

PATIENT
  Sex: Female

DRUGS (7)
  1. DOXORUBICIN [Suspect]
     Active Substance: DOXORUBICIN
     Indication: B-CELL LYMPHOMA
     Dosage: UNK (DATE LAST CYCLE OF DOXORUBICIN STARTED PRIOR TO SAE: 04/JAN/2018)
     Route: 042
     Dates: start: 20171221, end: 20180104
  2. PEGFILGRASTIM [Suspect]
     Active Substance: PEGFILGRASTIM
     Dosage: DATE LAST RITUXIMAB GIVEN PRIOR TO SAE
     Route: 058
     Dates: start: 20180106
  3. PREDNISONE. [Suspect]
     Active Substance: PREDNISONE
     Indication: B-CELL LYMPHOMA
     Dosage: UNK, (DATE LAST CYCLE OF PREDNISONE STARTED PRIOR TO SAE: 04/JAN/2018)
     Route: 065
     Dates: end: 20180104
  4. VINCRISTINE [Suspect]
     Active Substance: VINCRISTINE
     Indication: B-CELL LYMPHOMA
     Dosage: UNK, (DATE LAST CYCLE OF VINCRISTINE STARTED PRIOR TO SAE: 04/JAN/2018)
     Route: 042
     Dates: start: 20171229, end: 20180104
  5. PEGFILGRASTIM [Suspect]
     Active Substance: PEGFILGRASTIM
     Indication: B-CELL LYMPHOMA
     Dosage: UNK
     Route: 058
     Dates: start: 20171224
  6. CYCLOPHOSPHAMIDE. [Suspect]
     Active Substance: CYCLOPHOSPHAMIDE
     Indication: B-CELL LYMPHOMA
     Dosage: UNK (DATE LAST CYCLE OF CYCLOPHOSPHAMIDE STARTED PRIOR TO SAE: 04/JAN/2018)
     Route: 042
     Dates: start: 20171221, end: 20180104
  7. RITUXIMAB. [Suspect]
     Active Substance: RITUXIMAB
     Indication: B-CELL LYMPHOMA
     Dosage: UNK (DATE LAST RITUXIMAB GIVEN PRIOR TO SAE: 03/JAN/2018)
     Route: 042
     Dates: start: 20171216, end: 20180103

REACTIONS (1)
  - General physical health deterioration [Not Recovered/Not Resolved]

NARRATIVE: CASE EVENT DATE: 20180108
